FAERS Safety Report 13798825 (Version 2)
Quarter: 2017Q4

REPORT INFORMATION
  Report Type: Spontaneous
  Country: US (occurrence: US)
  Receive Date: 20170727
  Receipt Date: 20171006
  Transmission Date: 20180320
  Serious: No
  Sender: FDA-Public Use
  Company Number: US-JNJFOC-20170706987

PATIENT
  Age: 67 Year
  Sex: Female
  Weight: 56.7 kg

DRUGS (3)
  1. WOMENS ROGAINE UNSCENTED [Suspect]
     Active Substance: MINOXIDIL
     Indication: DIFFUSE ALOPECIA
     Dosage: 5-6 WEEK, 1/2 CAPFUL
     Route: 061
     Dates: start: 201705, end: 20170702
  2. WOMENS ROGAINE UNSCENTED [Suspect]
     Active Substance: MINOXIDIL
     Indication: ALOPECIA
     Dosage: 5-6 WEEK, 1/2 CAPFUL
     Route: 061
     Dates: start: 201705, end: 20170702
  3. SYNTHROID [Concomitant]
     Active Substance: LEVOTHYROXINE SODIUM
     Indication: HYPOTHYROIDISM
     Route: 065

REACTIONS (6)
  - Pain of skin [Recovering/Resolving]
  - Product use in unapproved indication [Recovering/Resolving]
  - Hair texture abnormal [Recovering/Resolving]
  - Inappropriate schedule of drug administration [Recovering/Resolving]
  - Skin burning sensation [Recovering/Resolving]
  - Off label use [Recovering/Resolving]

NARRATIVE: CASE EVENT DATE: 2017
